FAERS Safety Report 5316502-X (Version None)
Quarter: 2007Q2

REPORT INFORMATION
  Report Type: 
  Country: None (occurrence: None)
  Receive Date: 20070504
  Receipt Date: 20070424
  Transmission Date: 20071010
  Serious: Yes (Hospitalization)
  Sender: FDA-Public Use
  Company Number: SE-JNJFOC-20070405384

PATIENT
  Age: 59 Year
  Sex: Female

DRUGS (6)
  1. REMICADE [Suspect]
     Route: 042
  2. REMICADE [Suspect]
     Indication: SPONDYLITIS
     Route: 042
  3. BEHEPAN [Concomitant]
     Route: 030
  4. VOLTAREN [Concomitant]
     Dosage: 50 MG 1-3 TIMES DAILY
     Route: 054
  5. VOLTAREN [Concomitant]
     Route: 048
  6. PARIET [Concomitant]
     Route: 048

REACTIONS (1)
  - ARTERIOSPASM CORONARY [None]
